FAERS Safety Report 24011017 (Version 1)
Quarter: 2024Q2

REPORT INFORMATION
  Report Type: Spontaneous
  Country: CN (occurrence: CN)
  Receive Date: 20240625
  Receipt Date: 20240625
  Transmission Date: 20240716
  Serious: Yes (Other)
  Sender: FDA-Public Use
  Company Number: CN-AMGEN-CHNSP2024122127

PATIENT
  Age: 72 Year
  Sex: Female

DRUGS (6)
  1. KYPROLIS [Suspect]
     Active Substance: CARFILZOMIB
     Indication: Plasma cell myeloma
     Dosage: 35 MILLIGRAM, D1-2
     Route: 042
     Dates: start: 20240405, end: 20240406
  2. DEXAMETHASONE SODIUM PHOSPHATE [Concomitant]
     Active Substance: DEXAMETHASONE PHOSPHATE\DEXAMETHASONE SODIUM PHOSPHATE
     Indication: Prophylaxis
     Dosage: 20 MILLIGRAM, D1-2
     Route: 042
     Dates: start: 20240405, end: 20240406
  3. SODIUM CHLORIDE [Concomitant]
     Active Substance: SODIUM CHLORIDE
     Indication: Product used for unknown indication
     Dosage: 100 MILLILITER
     Route: 042
     Dates: start: 20240405, end: 20240406
  4. POMALIDOMIDE [Concomitant]
     Active Substance: POMALIDOMIDE
     Indication: Plasma cell myeloma
     Dosage: 4 MILLIGRAM, D1-21
     Route: 048
     Dates: start: 20240401, end: 20240421
  5. STERILE WATER [Concomitant]
     Active Substance: WATER
     Indication: Product used for unknown indication
     Dosage: 29 MILLILITER
     Route: 042
     Dates: start: 20240405, end: 20240406
  6. DEXTROSE [Concomitant]
     Active Substance: DEXTROSE\DEXTROSE MONOHYDRATE
     Indication: Product used for unknown indication
     Dosage: 100 MILLILITER
     Route: 042
     Dates: start: 20240405, end: 20240406

REACTIONS (1)
  - Tremor [Recovering/Resolving]

NARRATIVE: CASE EVENT DATE: 20240508
